FAERS Safety Report 17707547 (Version 1)
Quarter: 2020Q2

REPORT INFORMATION
  Report Type: Spontaneous
  Country: CH (occurrence: CH)
  Receive Date: 20200424
  Receipt Date: 20200424
  Transmission Date: 20200714
  Serious: Yes (Life-Threatening, Hospitalization, Disabling)
  Sender: FDA-Public Use
  Company Number: CH-DSJP-DSE-2020-112280

PATIENT

DRUGS (6)
  1. IMBRUVICA [Interacting]
     Active Substance: IBRUTINIB
     Dosage: 140 MG
     Route: 048
     Dates: start: 202001, end: 20200214
  2. TOREM                              /01036501/ [Concomitant]
     Active Substance: TORSEMIDE
     Indication: PRODUCT USED FOR UNKNOWN INDICATION
     Dosage: 1 DF, ONCE EVERY 12HR
  3. IMBRUVICA [Interacting]
     Active Substance: IBRUTINIB
     Indication: CHRONIC LYMPHOCYTIC LEUKAEMIA
     Dosage: 420 MG, QD
     Route: 048
     Dates: start: 20190808, end: 202001
  4. VALTREX [Concomitant]
     Active Substance: VALACYCLOVIR HYDROCHLORIDE
     Indication: PRODUCT USED FOR UNKNOWN INDICATION
     Dosage: 500 MG, QD
  5. NOPIL [Concomitant]
     Active Substance: SULFAMETHOXAZOLE\TRIMETHOPRIM
     Indication: PRODUCT USED FOR UNKNOWN INDICATION
     Dosage: 1 DF, 3 TIMES PER 1WK
  6. LIXIANA [Suspect]
     Active Substance: EDOXABAN TOSYLATE
     Indication: ATRIAL FIBRILLATION
     Dosage: 60 MG, QD
     Route: 048
     Dates: start: 202001, end: 20200213

REACTIONS (3)
  - Pericardial haemorrhage [Recovered/Resolved with Sequelae]
  - Potentiating drug interaction [Recovered/Resolved with Sequelae]
  - Pericarditis constrictive [Recovered/Resolved with Sequelae]

NARRATIVE: CASE EVENT DATE: 202001
